FAERS Safety Report 19498256 (Version 1)
Quarter: 2021Q3

REPORT INFORMATION
  Report Type: Spontaneous
  Country: DE (occurrence: DE)
  Receive Date: 20210706
  Receipt Date: 20210706
  Transmission Date: 20211014
  Serious: Yes (Hospitalization)
  Sender: FDA-Public Use
  Company Number: DE-PFIZER INC-2021770571

PATIENT
  Age: 73 Year
  Sex: Female

DRUGS (13)
  1. NEPRESOL [Concomitant]
     Dosage: 25 MG, 1?0?0?0
  2. GABAPENTIN. [Suspect]
     Active Substance: GABAPENTIN
     Dosage: FREQ:12 H;600 MG, 1?0?1?0
  3. PRAMIPEXOL [PRAMIPEXOLE] [Suspect]
     Active Substance: PRAMIPEXOLE
     Dosage: 35 MG, 0?0?0?1
  4. TORASEMID [Concomitant]
     Active Substance: TORSEMIDE
     Dosage: 10 MG, 2?0?0?0
  5. RAMIPRIL. [Concomitant]
     Active Substance: RAMIPRIL
     Dosage: FREQ:12 H;10 MG, 0.5?0?0.5?0
  6. PANTOPRAZOL [PANTOPRAZOLE] [Concomitant]
     Active Substance: PANTOPRAZOLE
     Dosage: 40 MG, 1?0?0?0
  7. DOXEPIN NEURAXPHARM [Concomitant]
     Dosage: 25 MG, 0?0?0.5?0
  8. METFORMIN [Concomitant]
     Active Substance: METFORMIN HYDROCHLORIDE
     Dosage: FREQ:12 H;500 MG, 1?0?1?0
  9. VERAPAMIL AL [Concomitant]
     Dosage: FREQ:12 H;240 MG, 0.5?0?0.5?0
  10. BROMAZEPAM [Suspect]
     Active Substance: BROMAZEPAM
     Indication: INSOMNIA
     Dosage: FREQ:{ASNECESSARY};6 MG, AS NEEDED DUE TO INSOMNIA
  11. BRALTUS [Concomitant]
     Active Substance: TIOTROPIUM BROMIDE
     Dosage: 10 UG
     Route: 055
  12. INUVAIR [Concomitant]
     Active Substance: BECLOMETHASONE DIPROPIONATE\FORMOTEROL FUMARATE
     Dosage: UNK
     Route: 055
  13. IBUPROFEN. [Concomitant]
     Active Substance: IBUPROFEN
     Dosage: 600 MG, 1?0?0?0

REACTIONS (5)
  - Product prescribing error [Unknown]
  - Blood creatinine decreased [Unknown]
  - Glomerular filtration rate decreased [Unknown]
  - Fracture [Unknown]
  - Fall [Unknown]

NARRATIVE: CASE EVENT DATE: 20201215
